FAERS Safety Report 21246636 (Version 7)
Quarter: 2024Q1

REPORT INFORMATION
  Report Type: Spontaneous
  Country: CA (occurrence: CA)
  Receive Date: 20220824
  Receipt Date: 20240220
  Transmission Date: 20240410
  Serious: Yes (Other)
  Sender: FDA-Public Use
  Company Number: CA-PFIZER INC-202200583135

PATIENT
  Age: 18 Year
  Sex: Female

DRUGS (3)
  1. ABRILADA [Suspect]
     Active Substance: ADALIMUMAB-AFZB
     Indication: Crohn^s disease
     Dosage: 40 MG, WEEKLY, PREFILLED SYRINGE, EVERY 7 DAY
     Route: 042
     Dates: start: 20220507
  2. ABRILADA [Suspect]
     Active Substance: ADALIMUMAB-AFZB
     Dosage: 40 MG, WEEKLY, PREFILLED SYRINGE
     Route: 042
     Dates: start: 20220811
  3. ABRILADA [Suspect]
     Active Substance: ADALIMUMAB-AFZB
     Dosage: 40 MG, WEEKLY, PREFILLED SYRINGE
     Route: 042

REACTIONS (11)
  - Fistula [Not Recovered/Not Resolved]
  - Condition aggravated [Recovered/Resolved]
  - Pain [Not Recovered/Not Resolved]
  - Mass [Unknown]
  - Fistula discharge [Unknown]
  - Insomnia [Unknown]
  - Sitting disability [Not Recovered/Not Resolved]
  - Acne [Unknown]
  - Pustule [Recovered/Resolved]
  - Off label use [Unknown]
  - Off label use [Unknown]

NARRATIVE: CASE EVENT DATE: 20220101
